FAERS Safety Report 23404891 (Version 1)
Quarter: 2024Q1

REPORT INFORMATION
  Report Type: Spontaneous
  Country: JP (occurrence: JP)
  Receive Date: 20240116
  Receipt Date: 20240116
  Transmission Date: 20240409
  Serious: Yes (Other)
  Sender: FDA-Public Use
  Company Number: JP-JNJFOC-20240139324

PATIENT
  Age: 3 Decade
  Sex: Male
  Weight: 54 kg

DRUGS (3)
  1. RISPERDAL [Suspect]
     Active Substance: RISPERIDONE
     Indication: Delirium
     Route: 048
  2. TRAZODONE HYDROCHLORIDE [Suspect]
     Active Substance: TRAZODONE HYDROCHLORIDE
     Indication: Delirium
     Route: 048
  3. LINEZOLID [Suspect]
     Active Substance: LINEZOLID
     Dosage: DOSE UNKNOWN
     Route: 065

REACTIONS (2)
  - Serotonin syndrome [Unknown]
  - Off label use [Unknown]
